FAERS Safety Report 8907294 (Version 1)
Quarter: 2012Q4

REPORT INFORMATION
  Report Type: 
  Country: US (occurrence: US)
  Receive Date: 20121113
  Receipt Date: 20121113
  Transmission Date: 20130627
  Serious: No
  Sender: FDA-Public Use
  Company Number: US-AMGEN-USASP2012010482

PATIENT
  Age: 53 Year
  Sex: Female
  Weight: 83.9 kg

DRUGS (8)
  1. ENBREL [Suspect]
     Indication: PRODUCT USED FOR UNKNOWN INDICATION
     Dosage: 50 mg, qwk
     Route: 058
  2. METHOTREXATE [Concomitant]
     Dosage: 2.5 mg, UNK
  3. VITAMIN E                          /00110501/ [Concomitant]
     Dosage: UNK
  4. ESTRADIOL [Concomitant]
     Dosage: 1 mg, UNK
  5. ARMOUR THYROID [Concomitant]
     Dosage: 60 mg, UNK
  6. MAGNESIUM [Concomitant]
     Dosage: 200 mg, UNK
  7. VITAMIN C                          /00008001/ [Concomitant]
     Dosage: 500 mg, UNK
  8. FOLIC ACID [Concomitant]
     Dosage: UNK

REACTIONS (1)
  - Sinusitis [Unknown]
